FAERS Safety Report 10868584 (Version 1)
Quarter: 2015Q1

REPORT INFORMATION
  Report Type: Spontaneous
  Country: ZA (occurrence: ZA)
  Receive Date: 20150225
  Receipt Date: 20150225
  Transmission Date: 20150721
  Serious: Yes (Hospitalization)
  Sender: FDA-Public Use
  Company Number: ZA-PFIZER INC-2015062942

PATIENT
  Age: 72 Year
  Sex: Female

DRUGS (6)
  1. AMLOC [Concomitant]
     Active Substance: AMLODIPINE BESYLATE
     Indication: HYPERTENSION
     Dosage: 5 MG, DAILY
     Route: 048
     Dates: start: 2013
  2. MYLACAND PLUS [Concomitant]
     Active Substance: CANDESARTAN CILEXETIL\HYDROCHLOROTHIAZIDE
     Indication: HYPERTENSION
     Dosage: 16/12.5 MG, DAILY
     Route: 048
     Dates: start: 201410
  3. ASPAVOR [Suspect]
     Active Substance: ATORVASTATIN
     Indication: HYPERCHOLESTEROLAEMIA
     Dosage: 40 MG, DAILY
     Route: 048
     Dates: start: 201410
  4. DIAPHAGE [Concomitant]
     Indication: DIABETES MELLITUS
     Dosage: 1000 UNK, UNK
     Route: 048
  5. ELANTAN ^KNOLL^ [Concomitant]
     Indication: CARDIAC FAILURE
     Dosage: 20 MG, DAILY
     Route: 048
  6. XALACOM [Suspect]
     Active Substance: LATANOPROST\TIMOLOL MALEATE
     Indication: GLAUCOMA
     Dosage: EYE DROP
     Route: 047
     Dates: start: 201410

REACTIONS (1)
  - Arthropathy [Recovering/Resolving]

NARRATIVE: CASE EVENT DATE: 20150126
